FAERS Safety Report 9465134 (Version 1)
Quarter: 2013Q3

REPORT INFORMATION
  Report Type: Spontaneous
  Country: MY (occurrence: MY)
  Receive Date: 20130819
  Receipt Date: 20130819
  Transmission Date: 20140515
  Serious: Yes (Other)
  Sender: FDA-Public Use
  Company Number: MY-PFIZER INC-2013236306

PATIENT
  Sex: 0

DRUGS (1)
  1. ZITHROMAX [Suspect]
     Dosage: 500 MG, UNK
     Route: 042

REACTIONS (1)
  - Pain [Unknown]
